FAERS Safety Report 6210705-8 (Version None)
Quarter: 2009Q2

REPORT INFORMATION
  Report Type: 
  Country: None (occurrence: None)
  Receive Date: 20090527
  Receipt Date: 20090511
  Transmission Date: 20091009
  Serious: Yes (Hospitalization)
  Sender: FDA-Public Use
  Company Number: 8046206

PATIENT
  Sex: Female

DRUGS (2)
  1. TUSSIONEX [Suspect]
  2. ANTIBIOTICS [Concomitant]

REACTIONS (1)
  - CARDIAC DISORDER [None]
